FAERS Safety Report 16126743 (Version 1)
Quarter: 2019Q1

REPORT INFORMATION
  Report Type: Spontaneous
  Country: NL (occurrence: NL)
  Receive Date: 20190328
  Receipt Date: 20190328
  Transmission Date: 20190418
  Serious: Yes (Hospitalization)
  Sender: FDA-Public Use
  Company Number: NL-B.I. PHARMACEUTICALS,INC./RIDGEFIELD-2019-BI-013022

PATIENT
  Age: 84 Year
  Sex: Male

DRUGS (5)
  1. PRADAXA [Suspect]
     Active Substance: DABIGATRAN ETEXILATE MESYLATE
     Indication: ATRIAL FIBRILLATION
     Route: 065
  2. BUMETANIDE. [Concomitant]
     Active Substance: BUMETANIDE
     Indication: PRODUCT USED FOR UNKNOWN INDICATION
     Route: 065
  3. MICARDIS [Suspect]
     Active Substance: TELMISARTAN
     Indication: PRODUCT USED FOR UNKNOWN INDICATION
     Route: 065
  4. SPIRONOLACTONE. [Concomitant]
     Active Substance: SPIRONOLACTONE
     Indication: PRODUCT USED FOR UNKNOWN INDICATION
     Route: 065
  5. AMLODIPINE [Concomitant]
     Active Substance: AMLODIPINE BESYLATE
     Indication: PRODUCT USED FOR UNKNOWN INDICATION
     Route: 065

REACTIONS (15)
  - Diarrhoea [Unknown]
  - Body temperature decreased [Unknown]
  - Abdominal pain upper [Unknown]
  - Hypophagia [Unknown]
  - Musculoskeletal pain [Unknown]
  - Metabolic acidosis [Unknown]
  - Acute kidney injury [Recovered/Resolved]
  - Anuria [Unknown]
  - Haemoptysis [Unknown]
  - Drug ineffective [Unknown]
  - Hypotension [Unknown]
  - Hyponatraemia [Unknown]
  - Bradycardia [Unknown]
  - Haemoglobin decreased [Unknown]
  - Pleural effusion [Unknown]
